FAERS Safety Report 5151436-5 (Version None)
Quarter: 2006Q4

REPORT INFORMATION
  Report Type: 
  Country: None (occurrence: None)
  Receive Date: 20061115
  Receipt Date: 20061106
  Transmission Date: 20070319
  Serious: Yes (Hospitalization)
  Sender: FDA-Public Use
  Company Number: DE-BRISTOL-MYERS SQUIBB COMPANY-13575253

PATIENT
  Age: 44 Year
  Sex: Female

DRUGS (12)
  1. ABILIFY [Suspect]
     Route: 048
  2. ZYPREXA [Concomitant]
     Dosage: 10MG/DAY 12/OCT/2006-12/OCT/2006 5MG/DAY 13/OCT/2006-CONT
     Route: 048
     Dates: start: 20060816
  3. MIRTAZAPINE [Concomitant]
     Dosage: 60MG/DAY 9/SEPT/2006-CONT
     Route: 048
     Dates: start: 20060816
  4. NEURONTIN [Concomitant]
     Route: 048
     Dates: end: 20061013
  5. CHLORALDURAT [Concomitant]
     Route: 048
     Dates: start: 20060816
  6. PANTOZOL [Concomitant]
     Dates: start: 20060816
  7. CYMBALTA [Concomitant]
     Dosage: 120MG/DAY 18/AUG/2006-CONT
     Route: 048
  8. LEVOTHYROXINE SODIUM [Concomitant]
     Route: 048
     Dates: start: 20060817
  9. HALDOL [Concomitant]
     Indication: RESTLESSNESS
  10. HALDOL [Concomitant]
     Indication: TENSION
  11. VALIUM [Concomitant]
     Indication: RESTLESSNESS
     Route: 042
  12. VALIUM [Concomitant]
     Indication: TENSION
     Route: 042

REACTIONS (1)
  - MICTURITION DISORDER [None]
